FAERS Safety Report 7501908-0 (Version None)
Quarter: 2011Q2

REPORT INFORMATION
  Report Type: 
  Country: None (occurrence: None)
  Receive Date: 20110525
  Receipt Date: 20110513
  Transmission Date: 20111010
  Serious: Yes (Death, Hospitalization)
  Sender: FDA-Public Use
  Company Number: JP-JNJFOC-20110107856

PATIENT
  Sex: Female
  Weight: 42 kg

DRUGS (31)
  1. DOXIL [Suspect]
     Dosage: CYCLE 6
     Route: 042
     Dates: start: 20100401, end: 20100401
  2. DOXIL [Suspect]
     Dosage: CYCLE 1
     Route: 042
     Dates: start: 20091009, end: 20091009
  3. NEUTROGIN [Concomitant]
     Route: 058
     Dates: start: 20091030, end: 20091030
  4. DOXIL [Suspect]
     Dosage: CYCLE 7
     Route: 042
     Dates: start: 20100507, end: 20100507
  5. DOXIL [Suspect]
     Dosage: CYCLE 9
     Route: 042
     Dates: start: 20100806, end: 20100806
  6. DOXIL [Suspect]
     Dosage: CYCLE 4
     Route: 042
     Dates: start: 20100107, end: 20100107
  7. NEUTROGIN [Concomitant]
     Route: 058
  8. DIPHENHYDRAMINE LAURILSULFATE [Concomitant]
     Route: 061
     Dates: start: 20091225, end: 20100512
  9. DOXIL [Suspect]
     Indication: OVARIAN CANCER RECURRENT
     Dosage: CYCLE 5
     Route: 042
     Dates: start: 20100304, end: 20100304
  10. GASPORT [Concomitant]
     Route: 048
     Dates: start: 20100512
  11. VALTREX [Concomitant]
     Route: 048
     Dates: start: 20100625, end: 20100630
  12. KETOCONAZOLE [Concomitant]
     Route: 003
     Dates: start: 20100625, end: 20100819
  13. GASMOTIN [Concomitant]
     Route: 048
     Dates: start: 20100820
  14. DOXIL [Suspect]
     Dosage: CYCLE 8
     Route: 042
     Dates: start: 20100604, end: 20100604
  15. ACRINOL [Concomitant]
     Route: 065
     Dates: start: 20100625
  16. LASIX [Concomitant]
     Route: 048
     Dates: start: 20100901
  17. ALDACTONE [Concomitant]
     Route: 048
     Dates: start: 20100901
  18. MAGMITT [Concomitant]
     Route: 048
     Dates: start: 20100611
  19. POLARAMINE [Concomitant]
     Route: 048
     Dates: start: 20091016, end: 20091210
  20. VALTREX [Concomitant]
     Route: 048
  21. HIRUDOID CREAM [Concomitant]
     Route: 061
     Dates: start: 20100506
  22. BETAMETHASONE SODIUM PHOSPHATE [Concomitant]
     Route: 061
     Dates: start: 20100702, end: 20100819
  23. MAGMITT [Concomitant]
     Route: 048
     Dates: end: 20100610
  24. POLARAMINE [Concomitant]
     Route: 048
     Dates: start: 20091211
  25. DOXIL [Suspect]
     Dosage: CYCLE 2
     Route: 042
     Dates: start: 20091106, end: 20091106
  26. DOXIL [Suspect]
     Dosage: CYCLE 3
     Route: 042
     Dates: start: 20091204, end: 20091204
  27. DECADRON [Concomitant]
     Route: 042
     Dates: start: 20091009
  28. BARAMYCIN [Concomitant]
     Route: 061
     Dates: start: 20100604
  29. METHYCOBAL [Concomitant]
     Route: 048
     Dates: start: 20100625
  30. DECADRON [Concomitant]
     Route: 042
  31. GRANISETRON HCL [Concomitant]
     Route: 041
     Dates: start: 20091009

REACTIONS (4)
  - MALIGNANT ASCITES [None]
  - PRURITUS [None]
  - PALMAR-PLANTAR ERYTHRODYSAESTHESIA SYNDROME [None]
  - CANCER PAIN [None]
